FAERS Safety Report 6152522-3 (Version None)
Quarter: 2009Q2

REPORT INFORMATION
  Report Type: 
  Country: None (occurrence: None)
  Receive Date: 20090413
  Receipt Date: 20090408
  Transmission Date: 20091009
  Serious: Yes (Death, Other)
  Sender: FDA-Public Use
  Company Number: US-ELI_LILLY_AND_COMPANY-US200904002160

PATIENT
  Sex: Male

DRUGS (12)
  1. GEMZAR [Suspect]
     Indication: BREAST CANCER METASTATIC
     Dosage: 2280 MG, UNK
     Route: 042
     Dates: start: 20090311, end: 20090311
  2. HERCEPTIN [Concomitant]
     Dosage: 966 MG, UNK
  3. ZOFRAN [Concomitant]
     Dosage: 8 MG, UNK
  4. DEXAMETHASONE 4MG TAB [Concomitant]
     Dosage: 8 MG, UNK
  5. ZESTRIL [Concomitant]
  6. GLUCOTROL [Concomitant]
  7. NORVASC [Concomitant]
  8. PREDNISONE [Concomitant]
  9. TRIAMTEREN [Concomitant]
  10. SIMVASTATIN [Concomitant]
  11. JANUVIA [Concomitant]
  12. RABEPRAZOLE SODIUM [Concomitant]

REACTIONS (2)
  - CEREBROVASCULAR ACCIDENT [None]
  - DEATH [None]
